FAERS Safety Report 21232757 (Version 1)
Quarter: 2022Q3

REPORT INFORMATION
  Report Type: Spontaneous
  Country: FI (occurrence: FI)
  Receive Date: 20220819
  Receipt Date: 20220819
  Transmission Date: 20221026
  Serious: Yes (Hospitalization, Other)
  Sender: FDA-Public Use
  Company Number: FI-ROCHE-3081023

PATIENT
  Age: 72 Year
  Sex: Male

DRUGS (3)
  1. OXALIPLATIN [Suspect]
     Active Substance: OXALIPLATIN
     Indication: Rectal cancer
     Dosage: UNK, INITIALLY RECEIVED2CYCLES WITH CAPECITABINE LATER ONE CYCLE WITH GIMERACIL/OTERACIL/TEGAFUR
     Route: 065
  2. CAPECITABINE [Suspect]
     Active Substance: CAPECITABINE
     Indication: Rectal cancer
     Dosage: UNK, (RECEIVED 2 CYCLES)
     Route: 048
  3. GIMERACIL\OTERACIL\TEGAFUR [Suspect]
     Active Substance: GIMERACIL\OTERACIL\TEGAFUR
     Indication: Rectal cancer
     Dosage: UNK, (RECEIVED 1 CYCLE)
     Route: 065

REACTIONS (2)
  - Cardiotoxicity [Recovered/Resolved]
  - Angina pectoris [Recovered/Resolved]
